FAERS Safety Report 23092235 (Version 1)
Quarter: 2023Q4

REPORT INFORMATION
  Report Type: Spontaneous
  Country: IN (occurrence: IN)
  Receive Date: 20231021
  Receipt Date: 20231021
  Transmission Date: 20240110
  Serious: Yes (Other)
  Sender: FDA-Public Use
  Company Number: IN-002147023-NVSC2023IN210954

PATIENT
  Sex: Female

DRUGS (4)
  1. IMATINIB [Suspect]
     Active Substance: IMATINIB
     Indication: Chronic myeloid leukaemia
     Dosage: UNK
     Route: 065
     Dates: start: 20060901, end: 20210401
  2. IMATINIB [Suspect]
     Active Substance: IMATINIB
     Dosage: 400 MG, QD
     Route: 048
  3. NILOTINIB [Suspect]
     Active Substance: NILOTINIB
     Indication: Chronic myeloid leukaemia
     Dosage: UNK
     Route: 065
     Dates: start: 20230206, end: 20230925
  4. NILOTINIB [Suspect]
     Active Substance: NILOTINIB
     Dosage: 150 MG, BID (2 TABLETS)
     Route: 048

REACTIONS (4)
  - Dry gangrene [Unknown]
  - Arterial thrombosis [Unknown]
  - Drug intolerance [Unknown]
  - Drug ineffective [Unknown]
